FAERS Safety Report 12536659 (Version 1)
Quarter: 2016Q3

REPORT INFORMATION
  Report Type: Spontaneous
  Country: BR (occurrence: BR)
  Receive Date: 20160707
  Receipt Date: 20160707
  Transmission Date: 20161109
  Serious: Yes (Other)
  Sender: FDA-Public Use
  Company Number: BR-PFIZER INC-2016326812

PATIENT
  Age: 86 Year
  Sex: Female

DRUGS (3)
  1. FRONTAL [Suspect]
     Active Substance: ALPRAZOLAM
     Indication: PROPHYLAXIS
  2. FRONTAL [Suspect]
     Active Substance: ALPRAZOLAM
     Indication: INFARCTION
     Dosage: 1MG, 4X/DAY
  3. FRONTAL [Suspect]
     Active Substance: ALPRAZOLAM
     Indication: TACHYCARDIA

REACTIONS (3)
  - Infarction [Unknown]
  - Drug ineffective for unapproved indication [Unknown]
  - Cerebrovascular accident [Unknown]
